FAERS Safety Report 25824246 (Version 2)
Quarter: 2025Q4

REPORT INFORMATION
  Report Type: Spontaneous
  Country: US (occurrence: None)
  Receive Date: 20250919
  Receipt Date: 20251021
  Transmission Date: 20260117
  Serious: Yes (Other)
  Sender: UCB
  Company Number: US-UCBSA-2025057089

PATIENT
  Age: 45 Year
  Weight: 245 kg

DRUGS (1)
  1. BIMZELX [Suspect]
     Active Substance: BIMEKIZUMAB-BKZX
     Indication: Psoriasis
     Dosage: 160 MILLIGRAM, EV 4 WEEKS

REACTIONS (6)
  - Device issue [Unknown]
  - Product leakage [Unknown]
  - Arthritis [Unknown]
  - Pain [Not Recovered/Not Resolved]
  - Underdose [Unknown]
  - Product distribution issue [Unknown]
